FAERS Safety Report 7451945-X (Version None)
Quarter: 2011Q2

REPORT INFORMATION
  Report Type: 
  Country: None (occurrence: None)
  Receive Date: 20110502
  Receipt Date: 20110420
  Transmission Date: 20111010
  Serious: No
  Sender: FDA-Public Use
  Company Number: US-B.I. PHARMACEUTICALS,INC./RIDGEFIELD-2011-BP-11344BP

PATIENT
  Sex: Female

DRUGS (11)
  1. CALCIUM [Concomitant]
     Indication: PROPHYLAXIS
  2. SYNTHROID [Concomitant]
     Indication: HYPOTHYROIDISM
  3. MULTI-VITAMIN [Concomitant]
     Indication: PROPHYLAXIS
  4. PRADAXA [Suspect]
     Indication: ATRIAL FIBRILLATION
     Dosage: 150 MG
     Route: 048
     Dates: start: 20110416
  5. IRON [Concomitant]
     Indication: PROPHYLAXIS
  6. FOLIC ACID [Concomitant]
     Indication: PROPHYLAXIS
  7. AMLOIDIPINE BESYLATE [Concomitant]
     Indication: HYPERTENSION
  8. VITAMIN D [Concomitant]
     Indication: PROPHYLAXIS
  9. ATENOLOL [Concomitant]
     Indication: HYPERTENSION
  10. XYZAL [Concomitant]
     Indication: MULTIPLE ALLERGIES
  11. TRICOR [Concomitant]
     Indication: BLOOD CHOLESTEROL INCREASED

REACTIONS (1)
  - BACK PAIN [None]
